FAERS Safety Report 9181856 (Version 2)
Quarter: 2013Q2

REPORT INFORMATION
  Report Type: Spontaneous
  Country: JP (occurrence: JP)
  Receive Date: 20130322
  Receipt Date: 20130408
  Transmission Date: 20140414
  Serious: Yes (Other)
  Sender: FDA-Public Use
  Company Number: JP-JNJFOC-20130308652

PATIENT
  Age: 47 Year
  Sex: Male

DRUGS (5)
  1. DOXORUBICIN [Suspect]
     Indication: SARCOMA
     Dosage: 2 COURSES
     Route: 042
  2. DOXORUBICIN [Suspect]
     Indication: SARCOMA
     Dosage: 2 COURSES
     Route: 065
  3. CAFFEINE [Suspect]
     Indication: SARCOMA
     Dosage: 5 COURSES
     Route: 042
  4. CAFFEINE [Suspect]
     Indication: SARCOMA
     Dosage: 2 COURSES
     Route: 042
  5. CISPLATIN [Suspect]
     Indication: SARCOMA
     Dosage: 2 COURSES
     Route: 042

REACTIONS (2)
  - Renal impairment [Unknown]
  - Off label use [Unknown]
